FAERS Safety Report 10331986 (Version 1)
Quarter: 2014Q3

REPORT INFORMATION
  Report Type: Report from Study
  Country: KR (occurrence: KR)
  Receive Date: 20140722
  Receipt Date: 20140722
  Transmission Date: 20150326
  Serious: Yes (Hospitalization, Other)
  Sender: FDA-Public Use
  Company Number: KR-OTSUKA-JP-2014-15589

PATIENT
  Age: 69 Year
  Sex: Male

DRUGS (18)
  1. BLINDED ASPIRIN [Suspect]
     Active Substance: ASPIRIN
     Indication: CEREBRAL INFARCTION
     Dosage: UNK
     Route: 048
     Dates: start: 20100715
  2. RISPERDAL [Concomitant]
     Active Substance: RISPERIDONE
     Dosage: UNK
     Dates: start: 20110801
  3. LIPITOR [Concomitant]
     Active Substance: ATORVASTATIN CALCIUM
     Dosage: UNK
     Dates: start: 20100630
  4. LEXAPRO [Concomitant]
     Active Substance: ESCITALOPRAM OXALATE
     Dosage: UNK
     Dates: start: 20100920
  5. AMLOPIN [Concomitant]
     Active Substance: AMLODIPINE BESYLATE
     Dosage: UNK
     Dates: start: 20101018
  6. FEROBA [Concomitant]
     Dosage: UNK
     Dates: start: 20110523, end: 20111101
  7. PRITOR [Concomitant]
     Active Substance: TELMISARTAN
     Dosage: UNK
     Dates: start: 20100321
  8. BLINDED CILOSTAZOL [Suspect]
     Active Substance: CILOSTAZOL
     Indication: CEREBRAL INFARCTION
     Dosage: UNK
     Route: 048
     Dates: start: 20100715
  9. BLINDED PROBUCOL [Suspect]
     Active Substance: PROBUCOL
     Indication: CEREBRAL INFARCTION
     Dosage: UNK
     Route: 048
     Dates: start: 20100715
  10. EBIXA [Concomitant]
     Active Substance: MEMANTINE HYDROCHLORIDE
     Dosage: UNK
     Dates: start: 20110503
  11. MUTERAN [Concomitant]
     Dosage: UNK
     Dates: start: 20100705
  12. HARNAL [Concomitant]
     Active Substance: TAMSULOSIN HYDROCHLORIDE
     Dosage: UNK
     Dates: start: 20100805, end: 20110613
  13. TABACTAM [Concomitant]
     Dosage: UNK
     Dates: start: 20111026, end: 20111110
  14. PLACEBO [Suspect]
     Active Substance: UNSPECIFIED INGREDIENT
     Indication: CEREBRAL INFARCTION
     Dosage: UNK
     Route: 048
     Dates: start: 20100715
  15. MUCOMYST [Concomitant]
     Active Substance: ACETYLCYSTEINE
  16. TANATRIL [Concomitant]
     Active Substance: IMIDAPRIL
     Dosage: UNK
     Dates: start: 20100630
  17. DIABEX [Concomitant]
     Active Substance: METFORMIN HYDROCHLORIDE
     Dosage: UNK
     Dates: start: 20110209
  18. GLIATILIN [Concomitant]
     Dosage: UNK
     Dates: start: 20100729

REACTIONS (4)
  - Pneumonia [Unknown]
  - Atrial fibrillation [Unknown]
  - Hyperkalaemia [Unknown]
  - Renal failure acute [Unknown]

NARRATIVE: CASE EVENT DATE: 20111023
